FAERS Safety Report 25215490 (Version 1)
Quarter: 2025Q2

REPORT INFORMATION
  Report Type: Spontaneous
  Country: US (occurrence: US)
  Receive Date: 20250418
  Receipt Date: 20250418
  Transmission Date: 20250717
  Serious: No
  Sender: Phathom Pharmaceuticals
  Company Number: US-PHATHOM PHARMACEUTICALS INC.-2024PHT01602

PATIENT
  Age: 54 Year
  Sex: Female

DRUGS (1)
  1. VOQUEZNA [Suspect]
     Active Substance: VONOPRAZAN FUMARATE
     Dosage: 20 MG, 1X/DAY
     Route: 048

REACTIONS (5)
  - Somnolence [Unknown]
  - Malaise [Unknown]
  - Fear [Unknown]
  - Abdominal pain upper [Unknown]
  - Nausea [Unknown]
